FAERS Safety Report 10882239 (Version 1)
Quarter: 2015Q1

REPORT INFORMATION
  Report Type: Spontaneous
  Country: US (occurrence: None)
  Receive Date: 20150226
  Receipt Date: 20150226
  Transmission Date: 20150721
  Serious: Yes (Hospitalization)
  Sender: FDA-Public Use
  Company Number: None

PATIENT
  Age: 52 Year
  Sex: Male
  Weight: 77.1 kg

DRUGS (11)
  1. BISACODYL. [Concomitant]
     Active Substance: BISACODYL
  2. CHOLECALCIFEROL [Concomitant]
     Active Substance: CHOLECALCIFEROL
  3. FLUCONAZOLE. [Concomitant]
     Active Substance: FLUCONAZOLE
  4. MULTIPLE-VITAMIN [Concomitant]
  5. FLUDARABINE PHOSPHATE. [Suspect]
     Active Substance: FLUDARABINE PHOSPHATE
     Dates: end: 20150213
  6. ACYCLOVIR. [Concomitant]
     Active Substance: ACYCLOVIR
  7. DAPSONE. [Concomitant]
     Active Substance: DAPSONE
  8. ONDANSETRON [Concomitant]
     Active Substance: ONDANSETRON
  9. PROCHLORPERAZINE. [Concomitant]
     Active Substance: PROCHLORPERAZINE
  10. RITUXIMAB (MOAB C2B8 ANTI CD20 CHIMERIC) [Suspect]
     Active Substance: RITUXIMAB
     Dates: end: 20150211
  11. CYCLOPHOSPHAMIDE. [Suspect]
     Active Substance: CYCLOPHOSPHAMIDE
     Dates: end: 20150213

REACTIONS (6)
  - Headache [None]
  - Pyrexia [None]
  - Cough [None]
  - Pain [None]
  - Rhinorrhoea [None]
  - Neutropenia [None]

NARRATIVE: CASE EVENT DATE: 20150224
